FAERS Safety Report 8574871-1 (Version None)
Quarter: 2012Q3

REPORT INFORMATION
  Report Type: 
  Country: None (occurrence: None)
  Receive Date: 20120807
  Receipt Date: 20120731
  Transmission Date: 20120928
  Serious: Yes (Other)
  Sender: FDA-Public Use
  Company Number: FR-ELI_LILLY_AND_COMPANY-FR201204009629

PATIENT
  Age: 52 Year
  Sex: Male
  Weight: 86 kg

DRUGS (2)
  1. CIALIS [Suspect]
     Dosage: 5 MG, UNK
  2. CIALIS [Suspect]
     Dosage: 20 MG, UNK
     Route: 048

REACTIONS (1)
  - IMPAIRED GASTRIC EMPTYING [None]
